FAERS Safety Report 13102904 (Version 2)
Quarter: 2018Q3

REPORT INFORMATION
  Report Type: Spontaneous
  Country: US (occurrence: US)
  Receive Date: 20170110
  Receipt Date: 20180726
  Transmission Date: 20181010
  Serious: No
  Sender: FDA-Public Use
  Company Number: US-ACTELION-A-NJ2017-148143

PATIENT
  Age: 69 Year
  Sex: Male

DRUGS (1)
  1. VALCHLOR [Suspect]
     Active Substance: MECHLORETHAMINE
     Indication: MYCOSIS FUNGOIDES
     Dosage: UNK, THIN FILM TO AFFECTED SKIN QD
     Route: 061
     Dates: start: 20161209

REACTIONS (5)
  - Application site vesicles [Unknown]
  - Application site discharge [Unknown]
  - Therapy non-responder [Unknown]
  - Application site hypertrophy [Unknown]
  - Application site discolouration [Unknown]
